FAERS Safety Report 23883417 (Version 1)
Quarter: 2024Q2

REPORT INFORMATION
  Report Type: Spontaneous
  Country: US (occurrence: US)
  Receive Date: 20240522
  Receipt Date: 20240522
  Transmission Date: 20240716
  Serious: Yes (Other)
  Sender: FDA-Public Use
  Company Number: US-STRIDES ARCOLAB LIMITED-2024SP005880

PATIENT
  Age: 36 Year
  Sex: Female

DRUGS (6)
  1. DOXORUBICIN [Suspect]
     Active Substance: DOXORUBICIN
     Indication: Primary mediastinal large B-cell lymphoma
     Dosage: UNK, CYCLICAL (DA-REPOCH REGIMEN) (6 CYCLES COMPLETED)
     Route: 065
  2. ETOPOSIDE [Suspect]
     Active Substance: ETOPOSIDE
     Indication: Primary mediastinal large B-cell lymphoma
     Dosage: UNK, CYCLICAL (DA-REPOCH REGIMEN) (6 CYCLES COMPLETED)
     Route: 065
  3. PREDNISOLONE [Suspect]
     Active Substance: PREDNISOLONE
     Indication: Primary mediastinal large B-cell lymphoma
     Dosage: UNK, CYCLICAL (DA-REPOCH REGIMEN) (6 CYCLES COMPLETED)
     Route: 065
  4. CYCLOPHOSPHAMIDE [Suspect]
     Active Substance: CYCLOPHOSPHAMIDE
     Indication: Primary mediastinal large B-cell lymphoma
     Dosage: UNK, CYCLICAL (DA-REPOCH REGIMEN) (6 CYCLES COMPLETED)
     Route: 065
  5. RITUXIMAB [Suspect]
     Active Substance: RITUXIMAB
     Indication: Primary mediastinal large B-cell lymphoma
     Dosage: UNK, CYCLICAL (DA-REPOCH REGIMEN) (6 CYCLES COMPLETED)
     Route: 065
  6. VINCRISTINE [Suspect]
     Active Substance: VINCRISTINE
     Indication: Primary mediastinal large B-cell lymphoma
     Dosage: UNK, CYCLICAL (DA-REPOCH REGIMEN) (6 CYCLES COMPLETED)
     Route: 065

REACTIONS (5)
  - Pericardial effusion malignant [Unknown]
  - Malignant neoplasm progression [Unknown]
  - Pericarditis [Recovered/Resolved]
  - Mucosal inflammation [Unknown]
  - Maternal exposure during pregnancy [Unknown]
